FAERS Safety Report 25603477 (Version 1)
Quarter: 2025Q3

REPORT INFORMATION
  Report Type: Spontaneous
  Country: US (occurrence: US)
  Receive Date: 20250724
  Receipt Date: 20250724
  Transmission Date: 20251021
  Serious: Yes (Other)
  Sender: BRISTOL-MYERS SQUIBB COMPANY
  Company Number: US-BRISTOL-MYERS SQUIBB COMPANY-2025-103976

PATIENT
  Age: 76 Year
  Sex: Male
  Weight: 122.47 kg

DRUGS (1)
  1. POMALYST [Suspect]
     Active Substance: POMALIDOMIDE
     Indication: Plasma cell myeloma
     Dosage: DAILY FOR EVERY OTHER DAY ON DAYS 1-21 ON AND 7 DAYS OFF
     Route: 048
     Dates: start: 20240821

REACTIONS (1)
  - Adverse event [Unknown]
